FAERS Safety Report 4649742-3 (Version None)
Quarter: 2005Q2

REPORT INFORMATION
  Report Type: 
  Country: None (occurrence: None)
  Receive Date: 20050428
  Receipt Date: 20050428
  Transmission Date: 20051028
  Serious: Yes (Other)
  Sender: FDA-Public Use
  Company Number: None

PATIENT
  Age: 5 Year
  Sex: Female
  Weight: 23.6 kg

DRUGS (2)
  1. VANCOMYCIN [Suspect]
     Indication: CELLULITIS
     Dosage: 350MG   EVERY 8 HOURS   INTRAVENOU
     Route: 042
     Dates: start: 20050426, end: 20050427
  2. VANCOMYCIN [Suspect]
     Indication: LIMB CRUSHING INJURY
     Dosage: 350MG   EVERY 8 HOURS   INTRAVENOU
     Route: 042
     Dates: start: 20050426, end: 20050427

REACTIONS (4)
  - ERYTHEMA [None]
  - INFUSION RELATED REACTION [None]
  - PRURITUS [None]
  - SKIN DISORDER [None]
